FAERS Safety Report 5509804-5 (Version None)
Quarter: 2007Q4

REPORT INFORMATION
  Report Type: 
  Country: None (occurrence: None)
  Receive Date: 20071108
  Receipt Date: 20071102
  Transmission Date: 20080405
  Serious: Yes (Hospitalization)
  Sender: FDA-Public Use
  Company Number: HQWYE187013JUL05

PATIENT
  Age: 73 Year
  Sex: Male

DRUGS (9)
  1. OROKEN [Suspect]
     Indication: PROSTATITIS
     Dosage: UNKNOWN DOSE AND FREQUENCY
     Route: 048
     Dates: start: 20050429, end: 20050505
  2. ZELITREX [Suspect]
     Indication: HERPES VIRUS INFECTION
     Dosage: UNKNOWN DOSE AND FREQUENCY
     Route: 048
     Dates: start: 20050428, end: 20050502
  3. HYTACAND [Concomitant]
  4. OXAZEPAM [Concomitant]
  5. VASTIN [Concomitant]
  6. ALLOPURINOL [Concomitant]
  7. PREVISCAN [Concomitant]
     Dosage: NOT PROVIDED
     Dates: start: 20050428
  8. CIFLOX [Suspect]
     Indication: PROSTATITIS
     Route: 048
     Dates: start: 20050429, end: 20050505
  9. BUFLOMEDIL [Concomitant]

REACTIONS (2)
  - TELANGIECTASIA [None]
  - VASCULAR PURPURA [None]
